FAERS Safety Report 8127557-1 (Version None)
Quarter: 2012Q1

REPORT INFORMATION
  Report Type: 
  Country: None (occurrence: None)
  Receive Date: 20120210
  Receipt Date: 20120206
  Transmission Date: 20120608
  Serious: Yes (Hospitalization)
  Sender: FDA-Public Use
  Company Number: US-AMGEN-USASP2012007852

PATIENT
  Age: 61 Year
  Sex: Female

DRUGS (1)
  1. ENBREL [Suspect]
     Indication: PSORIATIC ARTHROPATHY
     Dosage: 25 MG, ONE TIME IN FOUR DAYS.
     Route: 058
     Dates: start: 20030501

REACTIONS (4)
  - TRANSIENT ISCHAEMIC ATTACK [None]
  - VITREOUS FLOATERS [None]
  - PRODUCTIVE COUGH [None]
  - PNEUMONIA [None]
